FAERS Safety Report 21537924 (Version 8)
Quarter: 2023Q4

REPORT INFORMATION
  Report Type: Spontaneous
  Country: EC (occurrence: EC)
  Receive Date: 20221101
  Receipt Date: 20231108
  Transmission Date: 20240110
  Serious: Yes (Other)
  Sender: FDA-Public Use
  Company Number: EC-PFIZER INC-PV202200089220

PATIENT
  Age: 11 Year
  Sex: Male

DRUGS (5)
  1. SOMATROPIN [Suspect]
     Active Substance: SOMATROPIN
     Dosage: UNK
     Route: 058
     Dates: start: 20220905, end: 2022
  2. SOMATROPIN [Suspect]
     Active Substance: SOMATROPIN
     Dosage: UNK
     Route: 058
     Dates: start: 20221024
  3. ZINC [Concomitant]
     Active Substance: PYRITHIONE ZINC\ZINC\ZINC CHLORIDE
     Dosage: UNK
  4. ARGININE [Concomitant]
     Active Substance: ARGININE
     Dosage: UNK
  5. CARNISIN [Concomitant]
     Dosage: UNK

REACTIONS (3)
  - Injection site pain [Recovered/Resolved]
  - Needle issue [Recovered/Resolved]
  - Underweight [Unknown]

NARRATIVE: CASE EVENT DATE: 20220905
